FAERS Safety Report 8487634-2 (Version None)
Quarter: 2012Q2

REPORT INFORMATION
  Report Type: 
  Country: None (occurrence: None)
  Receive Date: 20120402
  Receipt Date: 20090402
  Transmission Date: 20120825
  Serious: Yes (Other)
  Sender: FDA-Public Use
  Company Number: PHEH2009US03334

PATIENT
  Sex: Female

DRUGS (10)
  1. OXYCODONE HCL [Concomitant]
  2. ATENOLOL [Concomitant]
  3. EXFORGE [Suspect]
     Dosage: 5/160 MG
  4. SIMVASTATIN [Concomitant]
  5. LANTUS [Concomitant]
  6. NIASPAN [Concomitant]
  7. NEXIUM [Concomitant]
  8. PRINIVIL [Concomitant]
  9. MOBIC [Concomitant]
  10. NEURONTIN [Concomitant]

REACTIONS (1)
  - BLOOD GLUCOSE INCREASED [None]
